FAERS Safety Report 9571475 (Version 12)
Quarter: 2014Q2

REPORT INFORMATION
  Report Type: Spontaneous
  Country: US (occurrence: US)
  Receive Date: 20131001
  Receipt Date: 20140506
  Transmission Date: 20141212
  Serious: Yes (Other)
  Sender: FDA-Public Use
  Company Number: US-JNJFOC-20130914266

PATIENT
  Age: 78 Year
  Sex: Female
  Weight: 45.81 kg

DRUGS (19)
  1. REMICADE [Suspect]
     Indication: COLITIS ULCERATIVE
     Route: 042
     Dates: start: 201302
  2. REMICADE [Suspect]
     Indication: COLITIS ULCERATIVE
     Route: 042
     Dates: start: 201304
  3. REMICADE [Suspect]
     Indication: COLITIS ULCERATIVE
     Dosage: FREQUENCY: 5 OR 6 WEEKS
     Route: 042
     Dates: start: 20130201, end: 201307
  4. REMICADE [Suspect]
     Indication: COLITIS ULCERATIVE
     Dosage: 5 MG/KG
     Route: 042
     Dates: start: 20130724, end: 20130724
  5. REMICADE [Suspect]
     Indication: COLITIS ULCERATIVE
     Dosage: INITIATED IN JAN (YEAR UNSPECIFIED)
     Route: 042
  6. PREDNISONE [Suspect]
     Indication: PRODUCT USED FOR UNKNOWN INDICATION
     Route: 065
     Dates: start: 201302
  7. ACETAMINOPHEN [Concomitant]
     Indication: PAIN
     Dosage: STRENGTH 500 MG
     Route: 048
  8. CALCIUM WITH VITAMIN  D [Concomitant]
     Indication: OSTEOPENIA
     Dosage: STARTED BEFORE 6 YEARS
     Route: 048
  9. MULTIVITAMINS WITH IRON [Concomitant]
     Indication: BLOOD IRON DECREASED
     Dosage: STARTED ABOUT 5 YEARS AGO
     Route: 048
     Dates: start: 2007
  10. WARFARIN [Concomitant]
     Indication: ATRIAL FIBRILLATION
     Dosage: 4.5 TO 5 MG. STARTED ABOUT 11 YEARS AGO
     Route: 048
     Dates: start: 2001
  11. LORADAMED [Concomitant]
     Indication: PREMEDICATION
     Route: 065
     Dates: start: 20130724
  12. TYLENOL [Concomitant]
     Indication: PREMEDICATION
     Route: 065
     Dates: start: 20130724
  13. METOPROLOL [Concomitant]
     Indication: ATRIAL FIBRILLATION
     Route: 048
     Dates: start: 2001
  14. LIALDA [Concomitant]
     Indication: COLITIS
     Route: 048
     Dates: start: 201308
  15. ALIGN PROBIOTIC [Concomitant]
     Indication: IMMUNE SYSTEM DISORDER
     Route: 048
     Dates: start: 2007
  16. ASACOL [Concomitant]
     Indication: COLITIS ULCERATIVE
     Dosage: 3200 MG
     Route: 048
     Dates: start: 2005
  17. ASACOL [Concomitant]
     Indication: COLITIS ULCERATIVE
     Route: 048
     Dates: start: 2008, end: 201308
  18. ASACOL [Concomitant]
     Indication: COLITIS ULCERATIVE
     Dosage: 1600 MG
     Route: 048
     Dates: end: 201308
  19. ASACOL [Concomitant]
     Indication: COLITIS ULCERATIVE
     Dosage: 4 A DAY
     Route: 048
     Dates: start: 2013

REACTIONS (18)
  - Peripheral swelling [Recovered/Resolved]
  - Lupus-like syndrome [Not Recovered/Not Resolved]
  - Pain [Not Recovered/Not Resolved]
  - Balance disorder [Not Recovered/Not Resolved]
  - Abasia [Not Recovered/Not Resolved]
  - Hypoaesthesia [Recovered/Resolved]
  - Tooth loss [Recovered/Resolved]
  - Hypotension [Recovered/Resolved]
  - Pruritus [Recovered/Resolved]
  - Weight increased [Not Recovered/Not Resolved]
  - Infusion related reaction [Recovered/Resolved]
  - Hypersensitivity [Recovered/Resolved]
  - Fatigue [Not Recovered/Not Resolved]
  - Insomnia [Not Recovered/Not Resolved]
  - Pain in extremity [Not Recovered/Not Resolved]
  - Feeling hot [Recovered/Resolved]
  - Asthenia [Not Recovered/Not Resolved]
  - Pain in extremity [Not Recovered/Not Resolved]
